FAERS Safety Report 20193507 (Version 1)
Quarter: 2021Q4

REPORT INFORMATION
  Report Type: Spontaneous
  Country: DE (occurrence: DE)
  Receive Date: 20211216
  Receipt Date: 20211216
  Transmission Date: 20220303
  Serious: Yes (Death)
  Sender: FDA-Public Use
  Company Number: DE-Fresenius Kabi-FK202113968

PATIENT
  Age: 54 Year
  Sex: Male

DRUGS (8)
  1. HEPARIN SODIUM [Suspect]
     Active Substance: HEPARIN SODIUM
     Indication: Anticoagulant therapy
     Route: 065
  2. ARGATROBAN [Suspect]
     Active Substance: ARGATROBAN
     Indication: Anticoagulant therapy
     Route: 065
  3. ASTRAZENECA COVID-19 VACCINE [Suspect]
     Active Substance: AZD-1222
     Indication: COVID-19 prophylaxis
     Route: 065
  4. TINZAPARIN SODIUM [Suspect]
     Active Substance: TINZAPARIN SODIUM
     Indication: Anticoagulant therapy
     Route: 065
  5. DANAPAROID [Suspect]
     Active Substance: DANAPAROID
     Indication: Anticoagulant therapy
     Route: 065
  6. FONDAPARINUX [Suspect]
     Active Substance: FONDAPARINUX
     Indication: Anticoagulant therapy
     Route: 065
  7. IMMUNE GLOBULIN NOS [Concomitant]
     Active Substance: IMMUNE GLOBULIN NOS
     Indication: Thrombosis with thrombocytopenia syndrome
     Route: 042
  8. PREDNISOLONE [Concomitant]
     Active Substance: PREDNISOLONE
     Indication: Immunosuppression
     Route: 048

REACTIONS (1)
  - Cerebral haemorrhage [Fatal]
